FAERS Safety Report 9872301 (Version 1)
Quarter: 2014Q1

REPORT INFORMATION
  Report Type: Spontaneous
  Country: CA (occurrence: CA)
  Receive Date: 20140205
  Receipt Date: 20140205
  Transmission Date: 20141002
  Serious: Yes (Other)
  Sender: FDA-Public Use
  Company Number: CA-ROCHE-1342456

PATIENT
  Age: 13 Year
  Sex: Female

DRUGS (7)
  1. XOLAIR [Suspect]
     Indication: ASTHMA
     Route: 058
     Dates: start: 20120518
  2. XOLAIR [Suspect]
     Route: 065
     Dates: start: 20130725
  3. XOLAIR [Suspect]
     Route: 065
     Dates: start: 20130905
  4. PREDNISONE [Concomitant]
  5. SYMBICORT [Concomitant]
  6. SINGULAIR [Concomitant]
  7. VENTOLIN [Concomitant]

REACTIONS (7)
  - Excessive granulation tissue [Unknown]
  - Burning sensation [Unknown]
  - Heart rate increased [Not Recovered/Not Resolved]
  - Hypotension [Unknown]
  - Seborrhoea [Unknown]
  - Nasopharyngitis [Unknown]
  - Myalgia [Unknown]
